FAERS Safety Report 8589730 (Version 4)
Quarter: 2013Q2

REPORT INFORMATION
  Report Type: Spontaneous
  Country: US (occurrence: US)
  Receive Date: 20120601
  Receipt Date: 20130621
  Transmission Date: 20140414
  Serious: Yes (Death, Hospitalization)
  Sender: FDA-Public Use
  Company Number: US-BIOGENIDEC-2012BI018572

PATIENT
  Sex: Female

DRUGS (3)
  1. AVONEX [Suspect]
     Indication: MULTIPLE SCLEROSIS
     Route: 030
     Dates: start: 19990701
  2. LIPITOR [Concomitant]
  3. ASA [Concomitant]

REACTIONS (5)
  - Dementia Alzheimer^s type [Unknown]
  - Hypertension [Unknown]
  - Abasia [Unknown]
  - Multiple sclerosis [Fatal]
  - Drug ineffective [Unknown]
